FAERS Safety Report 5185860-1 (Version None)
Quarter: 2006Q4

REPORT INFORMATION
  Report Type: 
  Country: None (occurrence: None)
  Receive Date: 20061220
  Receipt Date: 20060922
  Transmission Date: 20070319
  Serious: No
  Sender: FDA-Public Use
  Company Number: US-GLAXOSMITHKLINE-A0621122A

PATIENT
  Age: 46 Year
  Sex: Male

DRUGS (2)
  1. NICODERM CQ [Suspect]
     Dates: start: 20060920
  2. NICODERM CQ [Suspect]
     Dates: start: 20060920

REACTIONS (3)
  - DIZZINESS [None]
  - MALAISE [None]
  - NAUSEA [None]
